FAERS Safety Report 23296896 (Version 2)
Quarter: 2025Q3

REPORT INFORMATION
  Report Type: Report from Study
  Country: EG (occurrence: EG)
  Receive Date: 20231214
  Receipt Date: 20250722
  Transmission Date: 20251021
  Serious: Yes (Other)
  Sender: SANDOZ
  Company Number: EG-SANDOZ-SDZ2023EG067760

PATIENT
  Age: 10 Year
  Sex: Female

DRUGS (4)
  1. OMNITROPE [Suspect]
     Active Substance: SOMATROPIN
     Indication: Short stature
     Dosage: 1 MG/DAY
     Route: 058
     Dates: start: 202103
  2. OMNITROPE [Suspect]
     Active Substance: SOMATROPIN
     Indication: Growth hormone deficiency
     Dosage: 5MG
     Route: 058
     Dates: start: 202103
  3. CALCIUM [Concomitant]
     Active Substance: CALCIUM
     Indication: Supplementation therapy
     Dosage: UNK UNK, QD
     Route: 048
  4. Vidrop [Concomitant]
     Indication: Supplementation therapy
     Dosage: 10 DROP, QD
     Route: 048

REACTIONS (10)
  - Dermatitis allergic [Recovered/Resolved]
  - Therapeutic product effect incomplete [Not Recovered/Not Resolved]
  - Product dose omission issue [Recovered/Resolved]
  - Expired device used [Recovered/Resolved]
  - Wrong technique in product usage process [Recovered/Resolved]
  - Multiple use of single-use product [Recovered/Resolved]
  - Product preparation error [Recovered/Resolved]
  - Product storage error [Recovered/Resolved]
  - Product availability issue [Not Recovered/Not Resolved]
  - Off label use [Unknown]

NARRATIVE: CASE EVENT DATE: 20230301
